FAERS Safety Report 7119167-X (Version None)
Quarter: 2010Q4

REPORT INFORMATION
  Report Type: 
  Country: None (occurrence: None)
  Receive Date: 20101123
  Receipt Date: 20101112
  Transmission Date: 20110411
  Serious: Yes (Other)
  Sender: FDA-Public Use
  Company Number: US-PFIZER INC-2010149293

PATIENT
  Sex: Male
  Weight: 80.739 kg

DRUGS (5)
  1. LYRICA [Suspect]
     Indication: NEURALGIA
     Dosage: 50 MG, 1X/DAY
     Route: 048
     Dates: start: 20100916, end: 20100101
  2. LYRICA [Suspect]
     Dosage: 50 MG, 2X/DAY
     Dates: start: 20100101
  3. OXYCODONE HCL [Concomitant]
     Indication: PAIN
     Dates: end: 20100101
  4. TYLENOL (CAPLET) [Concomitant]
     Indication: PAIN
  5. LIPITOR [Concomitant]
     Dosage: 20 MG, UNK

REACTIONS (4)
  - DYSPHAGIA [None]
  - MASTICATION DISORDER [None]
  - SPEECH DISORDER [None]
  - TONGUE DISORDER [None]
